FAERS Safety Report 8202970-2 (Version None)
Quarter: 2012Q1

REPORT INFORMATION
  Report Type: 
  Country: None (occurrence: None)
  Receive Date: 20120312
  Receipt Date: 20120306
  Transmission Date: 20120608
  Serious: Yes (Death)
  Sender: FDA-Public Use
  Company Number: US-CELGENEUS-163-21880-12011033

PATIENT
  Sex: Female

DRUGS (10)
  1. REVLIMID [Suspect]
     Dosage: 10 MILLIGRAM
     Route: 048
     Dates: start: 20100513
  2. DEXAMETHASONE [Concomitant]
     Dosage: 40 MILLIGRAM
     Route: 065
  3. BENADRYL [Concomitant]
     Route: 065
  4. OXYCONTIN [Concomitant]
     Route: 065
  5. CALCIUM [Concomitant]
     Route: 065
  6. REVLIMID [Suspect]
     Dosage: 10 MILLIGRAM
     Route: 048
     Dates: start: 20111013
  7. DIOVAN [Concomitant]
     Route: 065
  8. KLOR-CON [Concomitant]
     Route: 065
  9. HYDROCHLOROTHIAZIDE [Concomitant]
     Route: 065
  10. FISH OIL [Concomitant]
     Route: 065

REACTIONS (3)
  - MULTIPLE MYELOMA [None]
  - ORGAN FAILURE [None]
  - CARDIO-RESPIRATORY ARREST [None]
